FAERS Safety Report 15661651 (Version 2)
Quarter: 2018Q4

REPORT INFORMATION
  Report Type: Report from Study
  Country: US (occurrence: US)
  Receive Date: 20181127
  Receipt Date: 20181224
  Transmission Date: 20190205
  Serious: Yes (Other)
  Sender: FDA-Public Use
  Company Number: US-TESARO-2018-TSO1982-US

PATIENT
  Sex: Female
  Weight: 62 kg

DRUGS (1)
  1. ZEJULA [Suspect]
     Active Substance: NIRAPARIB
     Indication: OVARIAN CANCER
     Dosage: 200 MG, QD (7:30 PM WITHOUT FOOD)
     Route: 065
     Dates: start: 20181024

REACTIONS (11)
  - Haemoglobin decreased [Unknown]
  - Nocturia [Unknown]
  - Aspartate aminotransferase increased [Unknown]
  - Hot flush [Recovered/Resolved]
  - Constipation [Recovered/Resolved]
  - Insomnia [Not Recovered/Not Resolved]
  - Heart rate increased [Recovering/Resolving]
  - Atrial fibrillation [Not Recovered/Not Resolved]
  - Hypertension [Recovering/Resolving]
  - Platelet count decreased [Unknown]
  - Alanine aminotransferase increased [Unknown]

NARRATIVE: CASE EVENT DATE: 2018
